FAERS Safety Report 19605882 (Version 2)
Quarter: 2021Q3

REPORT INFORMATION
  Report Type: Spontaneous
  Country: US (occurrence: US)
  Receive Date: 20210723
  Receipt Date: 20210826
  Transmission Date: 20211014
  Serious: No
  Sender: FDA-Public Use
  Company Number: US-PFIZER INC-2021770577

PATIENT
  Age: 18 Year
  Sex: Male

DRUGS (1)
  1. GENOTROPIN [Suspect]
     Active Substance: SOMATROPIN
     Indication: GROWTH HORMONE DEFICIENCY
     Dosage: 3.4 DOSE UNITS INJECTION NOT SPECIFIED DAILY FOR 6 NIGHTS OUT OF 7
     Dates: start: 2016

REACTIONS (2)
  - Device malfunction [Unknown]
  - Device physical property issue [Unknown]
